FAERS Safety Report 6587646-X (Version None)
Quarter: 2010Q1

REPORT INFORMATION
  Report Type: 
  Country: None (occurrence: None)
  Receive Date: 20100218
  Receipt Date: 20100208
  Transmission Date: 20100710
  Serious: Yes (Hospitalization)
  Sender: FDA-Public Use
  Company Number: DE-ELI_LILLY_AND_COMPANY-DE201002001890

PATIENT
  Age: 81 Year
  Sex: Female

DRUGS (2)
  1. FORTEO [Suspect]
     Indication: OSTEOPOROTIC FRACTURE
     Dosage: UNK, DAILY (1/D)
     Route: 058
     Dates: start: 20091101, end: 20100128
  2. ANALGESICS [Concomitant]
     Dosage: UNK, UNKNOWN

REACTIONS (2)
  - FATIGUE [None]
  - TRANSAMINASES INCREASED [None]
